FAERS Safety Report 9192553 (Version 1)
Quarter: 2013Q1

REPORT INFORMATION
  Report Type: Spontaneous
  Country: US (occurrence: None)
  Receive Date: 20120703
  Receipt Date: 20120703
  Transmission Date: 20140127
  Serious: Yes (Hospitalization)
  Sender: FDA-Public Use
  Company Number: PHEH2012US009729

PATIENT
  Age: 27 Year
  Sex: Female
  Weight: 59 kg

DRUGS (4)
  1. GILENYA (FTY)CAPSULE,0.5MG [Suspect]
     Indication: MULTIPLE SCLEROSIS
     Route: 048
     Dates: start: 20120507
  2. TRAMADOL (TRAMADOL) [Concomitant]
  3. TOPAMAX (TOPIRAMATE) [Concomitant]
  4. CYCLOBENZAPRINE (CYCLOBENZAPINE) [Concomitant]

REACTIONS (3)
  - Atrioventricular block second degree [None]
  - Bradycardia [None]
  - Blood pressure decreased [None]
